FAERS Safety Report 8536974-7 (Version None)
Quarter: 2012Q3

REPORT INFORMATION
  Report Type: 
  Country: None (occurrence: None)
  Receive Date: 20120718
  Receipt Date: 20120718
  Transmission Date: 20120928
  Serious: Yes (Hospitalization)
  Sender: FDA-Public Use
  Company Number: None

PATIENT
  Age: 60 Year
  Sex: Male
  Weight: 65.6 kg

DRUGS (2)
  1. IBUPROFEN [Suspect]
     Dosage: 1600 MG PO
     Route: 048
     Dates: start: 20120524, end: 20120531
  2. WARFARIN SODIUM [Suspect]
     Indication: INTRACARDIAC THROMBUS
     Dosage: 2MG MG OTHER PO
     Route: 048
     Dates: start: 20110111, end: 20120531

REACTIONS (5)
  - DUODENITIS [None]
  - MELAENA [None]
  - HAEMORRHAGE [None]
  - PAIN [None]
  - GASTRIC ULCER [None]
